FAERS Safety Report 9639733 (Version 1)
Quarter: 2013Q4

REPORT INFORMATION
  Report Type: Spontaneous
  Country: US (occurrence: None)
  Receive Date: 20131021
  Receipt Date: 20131021
  Transmission Date: 20140711
  Serious: Yes (Life-Threatening)
  Sender: FDA-Public Use
  Company Number: None

PATIENT
  Age: 61 Year
  Sex: Female
  Weight: 138.35 kg

DRUGS (1)
  1. PROAIR HFA INHALER [Suspect]

REACTIONS (3)
  - Product quality issue [None]
  - Drug ineffective [None]
  - Product quality issue [None]
